FAERS Safety Report 8776202 (Version 1)
Quarter: 2012Q4

REPORT INFORMATION
  Report Type: 
  Country: US (occurrence: US)
  Receive Date: 20120910
  Receipt Date: 20120910
  Transmission Date: 20130627
  Serious: Yes (Hospitalization)
  Sender: FDA-Public Use
  Company Number: US-ASTRAZENECA-2012SE69576

PATIENT
  Sex: Male

DRUGS (2)
  1. SYMBICORT PMDI [Suspect]
     Route: 055
  2. DECADRON [Suspect]
     Indication: BRAIN NEOPLASM
     Route: 065

REACTIONS (4)
  - Brain neoplasm [Unknown]
  - Dyspnoea [Unknown]
  - Dyspnoea [Unknown]
  - Drug dose omission [Unknown]
